FAERS Safety Report 6614243-X (Version None)
Quarter: 2010Q1

REPORT INFORMATION
  Report Type: 
  Country: None (occurrence: None)
  Receive Date: 20100303
  Receipt Date: 20100303
  Transmission Date: 20100710
  Serious: Yes (Life-Threatening, Hospitalization)
  Sender: FDA-Public Use
  Company Number: None

PATIENT
  Age: 60 Year
  Sex: Male

DRUGS (2)
  1. METHADONE HCL [Suspect]
     Indication: DRUG DEPENDENCE
     Dates: start: 20091011, end: 20091011
  2. ALPRAZOLAM [Suspect]
     Indication: ANXIETY
     Dates: start: 20091011, end: 20091011

REACTIONS (12)
  - AGITATION [None]
  - ALCOHOL WITHDRAWAL SYNDROME [None]
  - CONDITION AGGRAVATED [None]
  - CONFUSIONAL STATE [None]
  - DEPRESSION [None]
  - DRUG WITHDRAWAL SYNDROME [None]
  - DYSURIA [None]
  - MULTIPLE DRUG OVERDOSE INTENTIONAL [None]
  - RESTLESSNESS [None]
  - SOMNOLENCE [None]
  - SUICIDE ATTEMPT [None]
  - THROMBOCYTOPENIA [None]
